FAERS Safety Report 9331195 (Version 3)
Quarter: 2013Q2

REPORT INFORMATION
  Report Type: Spontaneous
  Country: AU (occurrence: AU)
  Receive Date: 20130605
  Receipt Date: 20130614
  Transmission Date: 20140414
  Serious: Yes (Hospitalization, Other)
  Sender: FDA-Public Use
  Company Number: AU-AMGEN-AUSSP2013038988

PATIENT
  Age: 65 Year
  Sex: Male

DRUGS (2)
  1. NEULASTA [Suspect]
     Indication: PRODUCT USED FOR UNKNOWN INDICATION
     Dosage: ON DAY 6 AND CYCLES EVERY MONTH, AFTER CHEMO
     Route: 065
     Dates: start: 20121217
  2. AZACITIDINE [Concomitant]
     Indication: ACUTE MYELOID LEUKAEMIA RECURRENT
     Dosage: X 5 DAYS
     Dates: start: 20121212

REACTIONS (8)
  - Enterococcal infection [Unknown]
  - Sepsis [Unknown]
  - Neutrophil count decreased [Unknown]
  - Pancytopenia [Unknown]
  - Haemoglobin decreased [Unknown]
  - Pyrexia [Unknown]
  - Malaise [Unknown]
  - Drug ineffective [Unknown]
